FAERS Safety Report 24060970 (Version 1)
Quarter: 2024Q3

REPORT INFORMATION
  Report Type: Spontaneous
  Country: US (occurrence: US)
  Receive Date: 20240708
  Receipt Date: 20240708
  Transmission Date: 20241017
  Serious: Yes (Death, Hospitalization, Other)
  Sender: FRESENIUS KABI
  Company Number: US-FreseniusKabi-FK202410635

PATIENT
  Age: 67 Year
  Sex: Male

DRUGS (3)
  1. ADALIMUMAB [Suspect]
     Active Substance: ADALIMUMAB\ISOPROPYL ALCOHOL
     Indication: Psoriasis
     Dosage: MISTAKENLY TAKEN THREE DOSES WITHIN ONE WEEK, RATHER THAN ONE DOSE EVERY TWO WEEKS AS PRESCRIBED
  2. CEFTRIAXONE [Concomitant]
     Active Substance: CEFTRIAXONE\CEFTRIAXONE SODIUM
     Indication: Pneumonia streptococcal
  3. MICAFUNGIN [Concomitant]
     Active Substance: MICAFUNGIN SODIUM
     Indication: Candida infection

REACTIONS (6)
  - Pneumonia legionella [Fatal]
  - Pneumonia necrotising [Fatal]
  - Respiratory failure [Fatal]
  - Immunosuppression [Not Recovered/Not Resolved]
  - Inappropriate schedule of product administration [Unknown]
  - Accidental overdose [Unknown]
